FAERS Safety Report 9232165 (Version 1)
Quarter: 2013Q2

REPORT INFORMATION
  Report Type: Spontaneous
  Country: DE (occurrence: DE)
  Receive Date: 20130415
  Receipt Date: 20130415
  Transmission Date: 20140414
  Serious: Yes (Congenital Anomaly, Other)
  Sender: FDA-Public Use
  Company Number: DE-MYLANLABS-2013S1007188

PATIENT
  Age: 0 Year
  Sex: Male
  Weight: 3.4 kg

DRUGS (3)
  1. LAMOTRIGINE [Suspect]
     Dosage: 275 [MG/D (150-0-125) ]/ ANTIEPILEPTIC MEDICATION SINCE 20 YEARS, NO SEIZURES DURING THE LAST YEARS
     Route: 064
  2. VALPROINSAURE CHRONO [Suspect]
     Dosage: 600 [MG/D (300-0-300) ]/ ANTIEPILEPTIC MEDICATION SINCE 20 YEARS, NO SEIZURES DURING THE LAST YEARS
     Route: 064
  3. FOLIO [Concomitant]
     Indication: PROPHYLAXIS OF NEURAL TUBE DEFECT
     Dosage: 0,4 [MG/D ]
     Route: 064

REACTIONS (4)
  - Aplasia cutis congenita [Not Recovered/Not Resolved]
  - Exposure during pregnancy [Recovered/Resolved]
  - Transient tachypnoea of the newborn [Recovered/Resolved]
  - Conjunctivitis bacterial [Unknown]
